FAERS Safety Report 7033161-9 (Version None)
Quarter: 2010Q4

REPORT INFORMATION
  Report Type: 
  Country: None (occurrence: None)
  Receive Date: 20101004
  Receipt Date: 20100916
  Transmission Date: 20110411
  Serious: Yes (Other)
  Sender: FDA-Public Use
  Company Number: ACO_02263_2010

PATIENT
  Age: 49 Year
  Sex: Female
  Weight: 56.6996 kg

DRUGS (5)
  1. AMPYRA [Suspect]
     Indication: QUALITY OF LIFE DECREASED
     Dosage: (10 MG QD ORAL), (10 MG BID ORAL)
     Route: 048
     Dates: start: 20100501, end: 20100501
  2. AMPYRA [Suspect]
     Indication: QUALITY OF LIFE DECREASED
     Dosage: (10 MG QD ORAL), (10 MG BID ORAL)
     Route: 048
     Dates: start: 20100501
  3. DITROPAN [Concomitant]
  4. MOTRIN [Concomitant]
  5. OPIUM /00040001/ [Concomitant]

REACTIONS (3)
  - DRUG EFFECT DECREASED [None]
  - HALLUCINATION, AUDITORY [None]
  - PARAESTHESIA [None]
